FAERS Safety Report 16905230 (Version 2)
Quarter: 2019Q4

REPORT INFORMATION
  Report Type: Report from Study
  Country: CA (occurrence: CA)
  Receive Date: 20191010
  Receipt Date: 20191011
  Transmission Date: 20200122
  Serious: Yes (Other)
  Sender: FDA-Public Use
  Company Number: CA-009507513-1905CAN007414

PATIENT
  Sex: Female

DRUGS (6)
  1. PUREGON (FOLLITROPIN BETA) [Suspect]
     Active Substance: FOLLITROPIN
     Indication: IN VITRO FERTILISATION
     Dosage: 300 INTERNATIONAL UNIT, UNK
     Route: 065
     Dates: start: 201905
  2. PUREGON (FOLLITROPIN BETA) [Suspect]
     Active Substance: FOLLITROPIN
     Dosage: 600 INTERNATIONAL UNIT, UNK
     Route: 065
     Dates: start: 201905
  3. PREGNYL [Suspect]
     Active Substance: CHORIOGONADOTROPIN ALFA
     Indication: IN VITRO FERTILISATION
     Dosage: 5 CYCLES
     Route: 065
     Dates: start: 2017
  4. PUREGON (FOLLITROPIN BETA) [Suspect]
     Active Substance: FOLLITROPIN
     Dosage: 900 INTERNATIONAL UNIT, UNK
     Route: 065
     Dates: start: 201905
  5. ORGALUTRAN [Suspect]
     Active Substance: GANIRELIX ACETATE
     Indication: IN VITRO FERTILISATION
     Dosage: 250 MICROGRAM, UNK
     Route: 065
     Dates: start: 201905
  6. PREGNYL [Suspect]
     Active Substance: CHORIOGONADOTROPIN ALFA
     Dosage: DOSE: 10000 U, UNK
     Route: 065
     Dates: start: 201905

REACTIONS (4)
  - Failed in vitro fertilisation [Unknown]
  - Abortion spontaneous [Unknown]
  - Drug ineffective [Unknown]
  - Maternal exposure before pregnancy [Recovered/Resolved]

NARRATIVE: CASE EVENT DATE: 2017
